FAERS Safety Report 8947981 (Version 1)
Quarter: 2012Q4

REPORT INFORMATION
  Report Type: Report from Study
  Country: CA (occurrence: CA)
  Receive Date: 20121204
  Receipt Date: 20121204
  Transmission Date: 20130627
  Serious: Yes (Other)
  Sender: FDA-Public Use
  Company Number: CA-JNJFOC-20121112672

PATIENT
  Age: 45 Year
  Sex: Female
  Weight: 75.1 kg

DRUGS (5)
  1. REMICADE [Suspect]
     Indication: CROHN^S DISEASE
     Route: 042
     Dates: start: 20120606
  2. IMURAN [Concomitant]
     Route: 065
  3. LOMOTIL [Concomitant]
     Route: 065
  4. CODEINE [Concomitant]
     Route: 065
  5. IRON  INFUSIONS [Concomitant]
     Route: 065

REACTIONS (3)
  - Pouchitis [Unknown]
  - Intestinal stenosis [Unknown]
  - Fungal infection [Unknown]
